FAERS Safety Report 4435819-4 (Version None)
Quarter: 2004Q3

REPORT INFORMATION
  Report Type: 
  Country: None (occurrence: None)
  Receive Date: 20040726
  Receipt Date: 20040415
  Transmission Date: 20050211
  Serious: No
  Sender: FDA-Public Use
  Company Number: USA040465142

PATIENT
  Age: 75 Year
  Sex: Female
  Weight: 64 kg

DRUGS (7)
  1. FORTEO [Suspect]
     Indication: OSTEOPOROSIS
     Dosage: 20 UG/1 DAY
     Dates: start: 20030401
  2. PROZAC [Concomitant]
  3. GLUCOPHAGE [Concomitant]
  4. LIPITOR [Concomitant]
  5. ACIPHEX (RABEPRAZOLE SODIUM0 [Concomitant]
  6. MIACALCIN [Concomitant]
  7. BOTOX (BOTULINUM TOXIN TYPE A) [Concomitant]

REACTIONS (1)
  - INJECTION SITE HAEMORRHAGE [None]
